FAERS Safety Report 8564544-3 (Version None)
Quarter: 2012Q3

REPORT INFORMATION
  Report Type: 
  Country: None (occurrence: None)
  Receive Date: 20120727
  Receipt Date: 20120727
  Transmission Date: 20120928
  Serious: Yes (Hospitalization)
  Sender: FDA-Public Use
  Company Number: None

PATIENT
  Age: 2 Year
  Sex: Male

DRUGS (1)
  1. BABYRUB OINTMENT (CONTINUED) [Suspect]
     Indication: DYSPNOEA
     Dosage: 1 APPLICATION, TOPICAL
     Route: 061

REACTIONS (1)
  - DRUG INEFFECTIVE [None]
